FAERS Safety Report 15193985 (Version 2)
Quarter: 2018Q4

REPORT INFORMATION
  Report Type: Spontaneous
  Country: AU (occurrence: AU)
  Receive Date: 20180725
  Receipt Date: 20181018
  Transmission Date: 20190204
  Serious: Yes (Hospitalization, Other)
  Sender: FDA-Public Use
  Company Number: AU-DRREDDYS-USA/AUS/18/0102370

PATIENT
  Age: 36 Year
  Sex: Male

DRUGS (9)
  1. CODEINE [Suspect]
     Active Substance: CODEINE
     Indication: PYREXIA
     Route: 065
  2. PARACETAMOL [Suspect]
     Active Substance: ACETAMINOPHEN
     Indication: MYALGIA
     Route: 065
  3. PARACETAMOL [Suspect]
     Active Substance: ACETAMINOPHEN
     Indication: PYREXIA
  4. CODEINE [Suspect]
     Active Substance: CODEINE
     Indication: MYALGIA
  5. IBUPROFEN. [Suspect]
     Active Substance: IBUPROFEN
     Indication: PYREXIA
  6. IBUPROFEN. [Suspect]
     Active Substance: IBUPROFEN
     Indication: HEADACHE
  7. PARACETAMOL [Suspect]
     Active Substance: ACETAMINOPHEN
     Indication: HEADACHE
  8. IBUPROFEN. [Suspect]
     Active Substance: IBUPROFEN
     Indication: MYALGIA
     Route: 065
  9. CODEINE [Suspect]
     Active Substance: CODEINE
     Indication: HEADACHE

REACTIONS (6)
  - Stevens-Johnson syndrome [Recovered/Resolved with Sequelae]
  - Self-medication [Unknown]
  - Nail disorder [Not Recovered/Not Resolved]
  - Respiratory failure [Recovering/Resolving]
  - Skin disorder [Recovered/Resolved]
  - Toxic epidermal necrolysis [Recovered/Resolved with Sequelae]
